FAERS Safety Report 5052110-6 (Version None)
Quarter: 2006Q3

REPORT INFORMATION
  Report Type: 
  Country: None (occurrence: None)
  Receive Date: 20060711
  Receipt Date: 20060622
  Transmission Date: 20061208
  Serious: Yes (Hospitalization)
  Sender: FDA-Public Use
  Company Number: FR200606005447

PATIENT
  Age: 49 Year
  Sex: Female

DRUGS (4)
  1. ZYPREXA [Suspect]
     Indication: SCHIZOPHRENIA
     Dosage: 10 MG, DAILY (1/D), ORAL
     Route: 048
     Dates: start: 20000101
  2. DIHYDANTOIN (PHENYTOIN) [Concomitant]
  3. ACETAMINOPHEN [Concomitant]
  4. TRAMADOL HCL [Concomitant]

REACTIONS (6)
  - EXTRADURAL HAEMATOMA [None]
  - HEAD INJURY [None]
  - INAPPROPRIATE ANTIDIURETIC HORMONE SECRETION [None]
  - PERICARDIAL HAEMORRHAGE [None]
  - PSYCHIATRIC SYMPTOM [None]
  - SUPRAVENTRICULAR TACHYCARDIA [None]
